FAERS Safety Report 9087546 (Version 1)
Quarter: 2013Q1

REPORT INFORMATION
  Report Type: Report from Study
  Country: US (occurrence: US)
  Receive Date: 20130201
  Receipt Date: 20130201
  Transmission Date: 20140127
  Serious: Yes (Hospitalization)
  Sender: FDA-Public Use
  Company Number: US-ABBOTT-12P-163-1025861-00

PATIENT
  Sex: Female
  Weight: 46.76 kg

DRUGS (2)
  1. HUMIRA [Suspect]
     Indication: RHEUMATOID ARTHRITIS
     Route: 058
     Dates: start: 201209, end: 201210
  2. LYRICA [Concomitant]
     Indication: COMPLEX REGIONAL PAIN SYNDROME

REACTIONS (2)
  - Pneumonia [Recovered/Resolved]
  - Pneumonia [Recovered/Resolved]
